FAERS Safety Report 6852696-2 (Version None)
Quarter: 2010Q3

REPORT INFORMATION
  Report Type: 
  Country: None (occurrence: None)
  Receive Date: 20100717
  Receipt Date: 20071117
  Transmission Date: 20110219
  Serious: No
  Sender: FDA-Public Use
  Company Number: US-PFIZER INC-2007099594

PATIENT
  Sex: Male
  Weight: 90.9 kg

DRUGS (6)
  1. CHANTIX [Suspect]
     Indication: SMOKING CESSATION THERAPY
     Route: 048
     Dates: start: 20070101, end: 20070101
  2. DIAZEPAM [Concomitant]
  3. BACLOFEN [Concomitant]
  4. ALBUTEROL [Concomitant]
     Route: 055
  5. ACETYLCYSTEINE [Concomitant]
     Route: 055
  6. MUCINEX [Concomitant]

REACTIONS (3)
  - ABNORMAL DREAMS [None]
  - CONSTIPATION [None]
  - RESTLESSNESS [None]
